FAERS Safety Report 25793603 (Version 2)
Quarter: 2025Q3

REPORT INFORMATION
  Report Type: Spontaneous
  Country: US (occurrence: US)
  Receive Date: 20250912
  Receipt Date: 20250920
  Transmission Date: 20251021
  Serious: Yes (Hospitalization, Other)
  Sender: ABBVIE
  Company Number: US-ABBVIE-6449690

PATIENT
  Sex: Female
  Weight: 1.8 kg

DRUGS (2)
  1. VRAYLAR [Suspect]
     Active Substance: CARIPRAZINE
     Indication: Maternal exposure timing unspecified
     Route: 064
  2. VRAYLAR [Suspect]
     Active Substance: CARIPRAZINE
     Indication: Maternal exposure timing unspecified
     Route: 063

REACTIONS (6)
  - Feeding disorder [Recovered/Resolved]
  - Exposure via breast milk [Unknown]
  - Premature baby [Not Recovered/Not Resolved]
  - Foetal exposure during pregnancy [Unknown]
  - Respiratory disorder [Recovered/Resolved]
  - Foetal heart rate deceleration abnormality [Recovered/Resolved]

NARRATIVE: CASE EVENT DATE: 20250325
